FAERS Safety Report 22040931 (Version 1)
Quarter: 2023Q1

REPORT INFORMATION
  Report Type: Spontaneous
  Country: US (occurrence: None)
  Receive Date: 20230225
  Receipt Date: 20230225
  Transmission Date: 20230417
  Serious: Yes (Disabling)
  Sender: FDA-Public Use
  Company Number: None

PATIENT
  Age: 54 Year
  Sex: Female

DRUGS (15)
  1. REPATHA [Suspect]
     Active Substance: EVOLOCUMAB
     Indication: Blood cholesterol increased
     Dosage: OTHER FREQUENCY : 1 INJECTION EVERY;?OTHER ROUTE : INJECTED INTO BELLY AREA NEVER IN THE MU;?
     Route: 050
  2. METFORMIN [Concomitant]
     Active Substance: METFORMIN HYDROCHLORIDE
  3. Metoperol succinate [Concomitant]
  4. TRULICITY [Concomitant]
     Active Substance: DULAGLUTIDE
  5. LISINOPRIL [Concomitant]
     Active Substance: LISINOPRIL
  6. CLOPIDOGREL [Concomitant]
     Active Substance: CLOPIDOGREL BISULFATE
  7. Nataglinide [Concomitant]
  8. PIOGLITAZONE [Concomitant]
     Active Substance: PIOGLITAZONE
  9. VITAMIN C [Concomitant]
     Active Substance: ASCORBIC ACID
  10. ZINC [Concomitant]
     Active Substance: ZINC
  11. VITAMIN D3 [Concomitant]
     Active Substance: CHOLECALCIFEROL
  12. ASPIRIN [Concomitant]
     Active Substance: ASPIRIN
  13. BIOTIN [Concomitant]
     Active Substance: BIOTIN
  14. COENZYME Q10 [Concomitant]
     Active Substance: DIETARY SUPPLEMENT\UBIDECARENONE
  15. Vit B12 Complex [Concomitant]

REACTIONS (3)
  - Back pain [None]
  - Pain in extremity [None]
  - Feeling abnormal [None]

NARRATIVE: CASE EVENT DATE: 20230210
